FAERS Safety Report 11871824 (Version 2)
Quarter: 2016Q1

REPORT INFORMATION
  Report Type: Spontaneous
  Country: JP (occurrence: JP)
  Receive Date: 20151228
  Receipt Date: 20160205
  Transmission Date: 20160526
  Serious: Yes (Other)
  Sender: FDA-Public Use
  Company Number: JP-BAYER-2015-491083

PATIENT
  Age: 40 Year
  Sex: Female

DRUGS (1)
  1. ADALAT CC [Suspect]
     Active Substance: NIFEDIPINE
     Indication: PROPHYLAXIS
     Route: 048

REACTIONS (5)
  - Blood urea increased [None]
  - Hypertension [None]
  - Off label use [None]
  - Caesarean section [Recovered/Resolved]
  - Maternal exposure during pregnancy [Recovered/Resolved]
